FAERS Safety Report 9271430 (Version 1)
Quarter: 2013Q2

REPORT INFORMATION
  Report Type: Spontaneous
  Country: US (occurrence: US)
  Receive Date: 20130506
  Receipt Date: 20130506
  Transmission Date: 20140414
  Serious: Yes (Hospitalization)
  Sender: FDA-Public Use
  Company Number: US-ELI_LILLY_AND_COMPANY-US201304008740

PATIENT
  Sex: 0

DRUGS (2)
  1. CYMBALTA [Suspect]
  2. GABAPENTIN [Concomitant]
     Indication: ARTHRITIS

REACTIONS (4)
  - Chest pain [Unknown]
  - Hot flush [Unknown]
  - Dyspnoea [Unknown]
  - Blood pressure increased [Unknown]
